FAERS Safety Report 25569711 (Version 3)
Quarter: 2025Q3

REPORT INFORMATION
  Report Type: Spontaneous
  Country: CA (occurrence: CA)
  Receive Date: 20250717
  Receipt Date: 20250915
  Transmission Date: 20251020
  Serious: Yes (Other)
  Sender: CELLTRION
  Company Number: CA-PFIZER INC-202500139596

PATIENT

DRUGS (15)
  1. INFLECTRA [Suspect]
     Active Substance: INFLIXIMAB-DYYB
     Indication: Sarcoidosis
     Route: 042
     Dates: start: 20180503, end: 20210811
  2. INFLECTRA [Suspect]
     Active Substance: INFLIXIMAB-DYYB
     Indication: Rheumatoid arthritis
     Route: 042
     Dates: start: 20211007, end: 20220518
  3. INFLECTRA [Suspect]
     Active Substance: INFLIXIMAB-DYYB
     Indication: Polyarteritis nodosa
     Route: 042
     Dates: start: 20220721
  4. CESAMET [Concomitant]
     Active Substance: NABILONE
  5. FOLIC ACID [Concomitant]
     Active Substance: FOLIC ACID
     Route: 048
  6. IBUPROFEN [Concomitant]
     Active Substance: IBUPROFEN
     Route: 065
  7. LYRICA [Concomitant]
     Active Substance: PREGABALIN
     Route: 065
  8. LYRICA [Concomitant]
     Active Substance: PREGABALIN
     Route: 048
  9. METHOTREXATE [Concomitant]
     Active Substance: METHOTREXATE
     Dosage: 1 DF, WEEKLY [TAPERING 0.75ML TO 0.70ML (STARTED AT 0.8ML)]
     Route: 058
     Dates: start: 2020
  10. METHOTREXATE [Concomitant]
     Active Substance: METHOTREXATE
     Dates: start: 202204
  11. METHOTREXATE [Concomitant]
     Active Substance: METHOTREXATE
     Dosage: 15 MG
     Route: 048
     Dates: start: 202204
  12. NAPROXEN [Concomitant]
     Active Substance: NAPROXEN
  13. NORTRIPTYLINE [Concomitant]
     Active Substance: NORTRIPTYLINE
  14. RABEPRAZOLE SODIUM [Concomitant]
     Active Substance: RABEPRAZOLE SODIUM
  15. PREDNISONE [Concomitant]
     Active Substance: PREDNISONE
     Indication: Arthralgia

REACTIONS (14)
  - Osteonecrosis [Unknown]
  - Rheumatoid arthritis [Unknown]
  - Polyarteritis nodosa [Unknown]
  - Pulmonary mass [Unknown]
  - Erythema nodosum [Unknown]
  - Defaecation urgency [Unknown]
  - Weight decreased [Recovering/Resolving]
  - Hypoglycaemia [Unknown]
  - Osteoarthritis [Unknown]
  - Pleural effusion [Unknown]
  - Urinary tract infection viral [Unknown]
  - Rash [Unknown]
  - Condition aggravated [Unknown]
  - Respiratory tract infection [Unknown]

NARRATIVE: CASE EVENT DATE: 20191109
